FAERS Safety Report 9229543 (Version 2)
Quarter: 2014Q2

REPORT INFORMATION
  Report Type: Spontaneous
  Country: US (occurrence: US)
  Receive Date: 20130413
  Receipt Date: 20140416
  Transmission Date: 20141212
  Serious: Yes (Hospitalization, Other)
  Sender: FDA-Public Use
  Company Number: US-B.I. PHARMACEUTICALS,INC./RIDGEFIELD-2013-BI-09619BP

PATIENT
  Age: 78 Year
  Sex: Male
  Weight: 72.57 kg

DRUGS (5)
  1. PRADAXA [Suspect]
     Indication: ATRIAL FIBRILLATION
     Dosage: 300 MG
     Route: 048
     Dates: start: 20110322, end: 20110412
  2. PRADAXA [Suspect]
     Route: 065
     Dates: end: 201209
  3. GABAPENTIN [Concomitant]
     Dosage: 2400 MG
     Route: 048
  4. PROPAFENONE [Concomitant]
     Dosage: 450 MG
     Route: 048
  5. HYTRIN [Concomitant]
     Dosage: 10 MG
     Route: 048

REACTIONS (6)
  - Lower gastrointestinal haemorrhage [Unknown]
  - Haemorrhagic anaemia [Unknown]
  - International normalised ratio increased [Unknown]
  - Haemorrhage [Unknown]
  - Abdominal wall haematoma [Unknown]
  - Epistaxis [Unknown]
